FAERS Safety Report 6190529-0 (Version None)
Quarter: 2009Q2

REPORT INFORMATION
  Report Type: 
  Country: None (occurrence: None)
  Receive Date: 20090514
  Receipt Date: 20090508
  Transmission Date: 20091009
  Serious: Yes (Other)
  Sender: FDA-Public Use
  Company Number: US-JNJFOC-20090502180

PATIENT
  Age: 8 Month
  Sex: Male
  Weight: 11.34 kg

DRUGS (2)
  1. CONCENTRATED MOTRIN INFANTS' [Suspect]
     Route: 048
  2. CONCENTRATED MOTRIN INFANTS' [Suspect]
     Indication: PYREXIA
     Route: 048

REACTIONS (2)
  - HYPERSENSITIVITY [None]
  - INCORRECT DOSE ADMINISTERED [None]
